FAERS Safety Report 14304314 (Version 1)
Quarter: 2017Q4

REPORT INFORMATION
  Report Type: Spontaneous
  Country: JP (occurrence: JP)
  Receive Date: 20171219
  Receipt Date: 20171219
  Transmission Date: 20180321
  Serious: Yes (Hospitalization)
  Sender: FDA-Public Use
  Company Number: JP-OTSUKA-JP-2012-15601

PATIENT
  Age: 4 Year
  Sex: Female
  Weight: 13.4 kg

DRUGS (1)
  1. ABILIFY [Suspect]
     Active Substance: ARIPIPRAZOLE
     Indication: PRODUCT USED FOR UNKNOWN INDICATION
     Dosage: UNK, SINGLE
     Route: 048
     Dates: start: 20120616, end: 20120616

REACTIONS (5)
  - Nystagmus [Recovered/Resolved]
  - Somnolence [Recovered/Resolved]
  - Accidental exposure to product by child [Unknown]
  - Salivary hypersecretion [Recovered/Resolved]
  - Agitation [Recovered/Resolved]

NARRATIVE: CASE EVENT DATE: 20120616
